FAERS Safety Report 8947971 (Version 1)
Quarter: 2012Q4

REPORT INFORMATION
  Report Type: Spontaneous
  Country: DE (occurrence: None)
  Receive Date: 20121127
  Receipt Date: 20121127
  Transmission Date: 20130627
  Serious: Yes (Hospitalization)
  Sender: FDA-Public Use
  Company Number: DE-1195101

PATIENT
  Age: 82 Year
  Sex: Female

DRUGS (1)
  1. AZOPT 1% [Suspect]
     Indication: GLAUCOMA
     Route: 047

REACTIONS (3)
  - Eye haemorrhage [None]
  - Eye pain [None]
  - Eye irritation [None]
